FAERS Safety Report 16278138 (Version 3)
Quarter: 2019Q2

REPORT INFORMATION
  Report Type: Report from Study
  Country: US (occurrence: US)
  Receive Date: 20190506
  Receipt Date: 20190620
  Transmission Date: 20190711
  Serious: Yes (Hospitalization, Other)
  Sender: FDA-Public Use
  Company Number: US-PFIZER INC-2019153949

PATIENT
  Age: 52 Year
  Sex: Female

DRUGS (3)
  1. ANASTROZOLE. [Concomitant]
     Active Substance: ANASTROZOLE
     Dosage: UNK
  2. IBRANCE [Suspect]
     Active Substance: PALBOCICLIB
     Indication: BREAST CANCER
     Dosage: 125 MG, CYCLIC, (21 DAYS ON/7 DAYS OFF, DAILY)
     Route: 048
     Dates: start: 20190323, end: 20190402
  3. IBRANCE [Suspect]
     Active Substance: PALBOCICLIB
     Dosage: 125 MG, CYCLIC, (21 DAYS ON/7 DAYS OFF)
     Route: 048
     Dates: start: 20190323

REACTIONS (8)
  - White blood cell count decreased [Not Recovered/Not Resolved]
  - Gastritis [Unknown]
  - Chest pain [Recovered/Resolved]
  - Chest discomfort [Recovered/Resolved]
  - Respiration abnormal [Unknown]
  - Gastric infection [Recovered/Resolved]
  - Inflammation [Unknown]
  - Diarrhoea [Recovered/Resolved]

NARRATIVE: CASE EVENT DATE: 2019
